FAERS Safety Report 9491438 (Version 2)
Quarter: 2013Q1

REPORT INFORMATION
  Report Type: Not Available
  Country: US (occurrence: US)
  Receive Date: 20120619
  Receipt Date: 20120619
  Transmission Date: 20140127
  Serious: Yes (Hospitalization)
  Sender: FDA-Public Use
  Company Number: US-LUNDBECK-DKLU1076341

PATIENT
  Age: 8 None
  Sex: Male
  Weight: 23 kg

DRUGS (15)
  1. CLOBAZAM [Suspect]
     Indication: LENNOX-GASTAUT SYNDROME
     Route: 048
     Dates: start: 20080630, end: 20091206
  2. CLOBAZAM [Suspect]
     Route: 048
     Dates: start: 20091207, end: 20091213
  3. CLOBAZAM [Suspect]
     Route: 048
     Dates: start: 20091207, end: 20091213
  4. CLOBAZAM [Suspect]
     Route: 048
     Dates: start: 20091214, end: 20091220
  5. CLOBAZAM [Suspect]
     Route: 048
     Dates: start: 20091221
  6. LEVOCARNITINE [Concomitant]
     Indication: PRODUCT USED FOR UNKNOWN INDICATION
     Route: 048
  7. ESOMEPRAZOLE [Concomitant]
     Indication: PRODUCT USED FOR UNKNOWN INDICATION
     Route: 048
  8. DIVALPROEX SODIUM [Concomitant]
     Indication: PRODUCT USED FOR UNKNOWN INDICATION
     Route: 048
  9. LEVETIRACETAM [Concomitant]
     Indication: PRODUCT USED FOR UNKNOWN INDICATION
     Route: 048
  10. ALBUTEROL [Concomitant]
     Indication: WHEEZING
     Route: 050
  11. MELATONIN [Concomitant]
     Indication: PRODUCT USED FOR UNKNOWN INDICATION
     Route: 048
  12. SCOPOLAMINE [Concomitant]
     Indication: MOTION SICKNESS
     Route: 050
  13. SACCHAROMYCES BOULARDII LYO [Concomitant]
     Indication: DIARRHOEA
     Route: 048
  14. BUDESONIDE [Concomitant]
     Indication: PRODUCT USED FOR UNKNOWN INDICATION
     Route: 050
  15. ALBUTEROL-IPRATROPIUM [Concomitant]
     Indication: PRODUCT USED FOR UNKNOWN INDICATION
     Route: 050

REACTIONS (1)
  - Pneumonia [Recovered/Resolved]
